FAERS Safety Report 4366760-3 (Version None)
Quarter: 2004Q2

REPORT INFORMATION
  Report Type: 
  Country: None (occurrence: None)
  Receive Date: 20040526
  Receipt Date: 20040526
  Transmission Date: 20050107
  Serious: Yes (Other)
  Sender: FDA-Public Use
  Company Number: None

PATIENT
  Age: 83 Year
  Sex: Male
  Weight: 92.7 kg

DRUGS (13)
  1. CLINDAMYCIN HCL [Suspect]
  2. PREDNISONE [Concomitant]
  3. HEPARIN SODIUM [Concomitant]
  4. POTASSIUM CHLORIDE [Concomitant]
  5. DIPHENHYDRAMINE HCL [Concomitant]
  6. HYDROCORITISONE [Concomitant]
  7. LEVOTHYROXINE SODIUM [Concomitant]
  8. FUROSEMIDE [Concomitant]
  9. ACETAMINOPHEN [Concomitant]
  10. LORAZEPAM [Concomitant]
  11. VANCOMYCIN [Concomitant]
  12. AMPICILLIN SODIUM/SULBACTAM SODIUM [Concomitant]
  13. FAMOTIDINE PREMIX [Concomitant]

REACTIONS (1)
  - RASH [None]
